FAERS Safety Report 7900208-4 (Version None)
Quarter: 2011Q4

REPORT INFORMATION
  Report Type: 
  Country: None (occurrence: None)
  Receive Date: 20111108
  Receipt Date: 20111101
  Transmission Date: 20120403
  Serious: Yes (Other)
  Sender: FDA-Public Use
  Company Number: US-AMGEN-USASP2011057654

PATIENT
  Age: 78 Year
  Sex: Male

DRUGS (1)
  1. PROCRIT [Suspect]
     Indication: ANAEMIA
     Dosage: 20000 IU, UNK
     Dates: start: 20110301

REACTIONS (2)
  - RETICULOCYTE COUNT DECREASED [None]
  - HAEMOGLOBIN DECREASED [None]
